FAERS Safety Report 17575962 (Version 1)
Quarter: 2020Q1

REPORT INFORMATION
  Report Type: Report from Study
  Country: CN (occurrence: CN)
  Receive Date: 20200324
  Receipt Date: 20200324
  Transmission Date: 20200409
  Serious: Yes (Other)
  Sender: FDA-Public Use
  Company Number: CN-ACCORD-176505

PATIENT
  Age: 13 Month
  Sex: Female

DRUGS (11)
  1. MYCOPHENOLIC ACID. [Suspect]
     Active Substance: MYCOPHENOLIC ACID
     Indication: PROPHYLAXIS AGAINST GRAFT VERSUS HOST DISEASE
  2. MICAFUNGIN/MICAFUNGIN SODIUM [Concomitant]
     Active Substance: MICAFUNGIN SODIUM
     Indication: PROPHYLAXIS
     Dosage: (4-6 MG/KG/D) FROM THE FIRST DAY OF CONDITIONING?UNTIL NEUTROPHILS ENGRAFTMENT
  3. CYCLOPHOSPHAMIDE/CYCLOPHOSPHAMIDE MONOHYDRATE [Suspect]
     Active Substance: CYCLOPHOSPHAMIDE
     Indication: CORD BLOOD TRANSPLANT THERAPY
     Dosage: 50 MG/KG/D BY I.V. FOR 2 DAYS (TOTAL DOSE, 100 MG/KG).
  4. GANCICLOVIR. [Concomitant]
     Active Substance: GANCICLOVIR
     Indication: ANTIVIRAL PROPHYLAXIS
     Dosage: FROM THE FIRST DAY OF CONDITIONING UNTIL DAY-1,
  5. INTRAVENOUS IMMUNOGLOBULIN [Concomitant]
     Active Substance: HUMAN IMMUNOGLOBULIN G
     Indication: PRODUCT USED FOR UNKNOWN INDICATION
     Dosage: 500 MG/KG/DOSE EVERY2 WEEKS STARTING ON DAY +1 POST-UCBT
  6. CICLOSPORIN [Suspect]
     Active Substance: CYCLOSPORINE
     Indication: PROPHYLAXIS AGAINST GRAFT VERSUS HOST DISEASE
     Dosage: PROPHYLAXIS AGAINST GRAFT VERSUS HOST DISEASE
  7. BUSULFAN. [Suspect]
     Active Substance: BUSULFAN
     Indication: CORD BLOOD TRANSPLANT THERAPY
     Dosage: 1-1.2 MG/KG GIVEN I.V. EVERY 6 HOURS FOR 4 DAYS (TOTAL DOSE, 16-19.2 MG/KG)
     Route: 042
  8. FLUDARABINE [Suspect]
     Active Substance: FLUDARABINE PHOSPHATE
     Indication: CORD BLOOD TRANSPLANT THERAPY
     Dosage: 35 MG/M2/D OR1.4 MG/KG/D BY I.V. FOR 5 DAYS (TOTAL DOSE, 175 MG/M2 OR 7MG/KG)
  9. ACICLOVIR [Concomitant]
     Active Substance: ACYCLOVIR
     Indication: PROPHYLAXIS
     Dosage: FROM DAY 0 UNTIL DAY +270
  10. VORICONAZOLE. [Concomitant]
     Active Substance: VORICONAZOLE
     Indication: PROPHYLAXIS
     Dosage: FROM NEUTROPHIL ENGRAFTMENT UNTIL DAY +180,
  11. SULFAMETHOXAZOLE/SULFAMETHOXAZOLE SODIUM [Concomitant]
     Active Substance: SULFAMETHOXAZOLE
     Indication: ANTIFUNGAL PROPHYLAXIS
     Dosage: TWICE A WEEK FROM THE TIME OF NEUTROPHIL ENGRAFTMENT UNTIL 6 MONTHS AFTER IMMUNE RECONSTITUTION.

REACTIONS (3)
  - Sepsis [Unknown]
  - Obliterative bronchiolitis [Unknown]
  - Pneumonia [Unknown]
